FAERS Safety Report 9397509 (Version 1)
Quarter: 2013Q3

REPORT INFORMATION
  Report Type: Spontaneous
  Country: PT (occurrence: PT)
  Receive Date: 20130712
  Receipt Date: 20130712
  Transmission Date: 20140515
  Serious: Yes (Other)
  Sender: FDA-Public Use
  Company Number: PT-JNJFOC-20130702017

PATIENT
  Age: 16 Year
  Sex: Female

DRUGS (2)
  1. INVEGA [Suspect]
     Indication: PSYCHOTIC BEHAVIOUR
     Route: 048
     Dates: start: 20130502, end: 20130530
  2. INVEGA [Suspect]
     Indication: PSYCHOTIC BEHAVIOUR
     Route: 048
     Dates: end: 20130501

REACTIONS (2)
  - Dermatitis allergic [Recovered/Resolved]
  - Off label use [Unknown]
